FAERS Safety Report 5007891-4 (Version None)
Quarter: 2006Q2

REPORT INFORMATION
  Report Type: 
  Country: None (occurrence: None)
  Receive Date: 20060518
  Receipt Date: 20060502
  Transmission Date: 20061013
  Serious: Yes (Hospitalization)
  Sender: FDA-Public Use
  Company Number: SUS1-2006-00488

PATIENT
  Age: 23 Year
  Sex: Male

DRUGS (3)
  1. PENTASA [Suspect]
     Indication: INTESTINAL VILLI ATROPHY
     Dosage: 2 G DAILY, ORAL
     Route: 048
     Dates: start: 20060201, end: 20060310
  2. ALDACTONE [Suspect]
     Indication: ASCITES
     Dates: start: 20060201, end: 20060310
  3. ENTOCORT(BUDESONIDE) [Suspect]
     Indication: INTESTINAL VILLI ATROPHY
     Dates: start: 20060201, end: 20060310

REACTIONS (4)
  - EPISTAXIS [None]
  - LYMPHOPENIA [None]
  - NEUTROPENIA [None]
  - THROMBOCYTOPENIA [None]
